FAERS Safety Report 8514092-1 (Version None)
Quarter: 2012Q3

REPORT INFORMATION
  Report Type: 
  Country: None (occurrence: None)
  Receive Date: 20120717
  Receipt Date: 20120709
  Transmission Date: 20120928
  Serious: Yes (Life-Threatening, Hospitalization)
  Sender: FDA-Public Use
  Company Number: GB-009507513-1207GBR004101

PATIENT

DRUGS (3)
  1. AMLODIPINE [Concomitant]
  2. LEVOTHYROXINE SODIUM [Concomitant]
  3. PRINIVIL [Suspect]
     Indication: HYPERTENSION
     Route: 048

REACTIONS (3)
  - STRIDOR [None]
  - SWOLLEN TONGUE [None]
  - DYSPHAGIA [None]
